FAERS Safety Report 9240349 (Version 1)
Quarter: 2013Q1

REPORT INFORMATION
  Report Type: Spontaneous
  Country: US (occurrence: None)
  Receive Date: 20121113
  Receipt Date: 20121113
  Transmission Date: 20140127
  Serious: No
  Sender: FDA-Public Use
  Company Number: 2012033213

PATIENT
  Sex: 0

DRUGS (1)
  1. BERINERT [Suspect]

REACTIONS (4)
  - Drug ineffective for unapproved indication [None]
  - Adverse drug reaction [None]
  - Drug effect delayed [None]
  - Drug effect decreased [None]
